FAERS Safety Report 9888136 (Version 1)
Quarter: 2014Q1

REPORT INFORMATION
  Report Type: Spontaneous
  Country: TR (occurrence: None)
  Receive Date: 20140207
  Receipt Date: 20140207
  Transmission Date: 20141002
  Serious: Yes (Death)
  Sender: FDA-Public Use
  Company Number: 2014P1000829

PATIENT
  Sex: 0

DRUGS (1)
  1. OLANZAPINE [Suspect]
     Route: 048

REACTIONS (2)
  - Incorrect dose administered [None]
  - Completed suicide [None]
